FAERS Safety Report 5200415-8 (Version None)
Quarter: 2006Q4

REPORT INFORMATION
  Report Type: 
  Country: None (occurrence: None)
  Receive Date: 20061016
  Receipt Date: 20060719
  Transmission Date: 20070319
  Serious: No
  Sender: FDA-Public Use
  Company Number: 2006SP002750

PATIENT
  Age: 45 Year
  Sex: Female
  Weight: 124.7392 kg

DRUGS (9)
  1. LUNESTA [Suspect]
     Indication: INSOMNIA
     Dosage: SEE IMAGE
     Route: 048
     Dates: start: 20060101, end: 20060101
  2. LUNESTA [Suspect]
     Indication: INSOMNIA
     Dosage: SEE IMAGE
     Route: 048
     Dates: start: 20060501, end: 20060101
  3. LUNESTA [Suspect]
     Indication: INSOMNIA
     Dosage: SEE IMAGE
     Route: 048
     Dates: start: 20060101
  4. ALTACE [Concomitant]
  5. AVANDIA [Concomitant]
  6. ATORVASTATIN CALCIUM [Concomitant]
  7. COMBIVENT /GFR/ [Concomitant]
  8. GEODON [Concomitant]
  9. VITAMIN CAP [Concomitant]

REACTIONS (1)
  - SOMNOLENCE [None]
